FAERS Safety Report 5174330-2 (Version None)
Quarter: 2006Q4

REPORT INFORMATION
  Report Type: 
  Country: None (occurrence: None)
  Receive Date: 20061214
  Receipt Date: 20060621
  Transmission Date: 20070319
  Serious: Yes (Hospitalization)
  Sender: FDA-Public Use
  Company Number: US-ELI_LILLY_AND_COMPANY-US200609006721

PATIENT
  Age: 41 Year
  Sex: Male
  Weight: 68.027 kg

DRUGS (2)
  1. SERTRALINE HYDROCHLORIDE [Concomitant]
     Dates: start: 20020101, end: 20060101
  2. ZYPREXA [Suspect]
     Indication: BIPOLAR DISORDER
     Dosage: 20 MG, UNK
     Route: 065
     Dates: start: 20020101, end: 20060101

REACTIONS (3)
  - BLOOD COUNT ABNORMAL [None]
  - DIABETES MELLITUS [None]
  - VISION BLURRED [None]
